FAERS Safety Report 6212754-2 (Version None)
Quarter: 2009Q2

REPORT INFORMATION
  Report Type: 
  Country: None (occurrence: None)
  Receive Date: 20090603
  Receipt Date: 20090528
  Transmission Date: 20091009
  Serious: Yes (Death)
  Sender: FDA-Public Use
  Company Number: JP-BRISTOL-MYERS SQUIBB COMPANY-14626246

PATIENT
  Age: 65 Year
  Sex: Female
  Weight: 29 kg

DRUGS (6)
  1. ERBITUX [Suspect]
     Indication: COLON CANCER
     Route: 042
     Dates: start: 20090423, end: 20090423
  2. DIPHENHYDRAMINE HCL [Concomitant]
     Indication: PREMEDICATION
     Dosage: FORMULATION TABS. 7.1429 MG
     Route: 048
     Dates: start: 20090423, end: 20090423
  3. DEXAMETHASONE SODIUM PHOSPHATE [Concomitant]
     Indication: PREMEDICATION
     Dosage: 1.1429 MG
     Route: 042
     Dates: start: 20090423, end: 20090423
  4. DOPAMINE HCL [Concomitant]
     Route: 042
     Dates: start: 20090313, end: 20090430
  5. BICARBONATE [Concomitant]
     Route: 042
     Dates: start: 20090402, end: 20090430
  6. FULCALIQ 2 [Concomitant]
     Route: 042
     Dates: start: 20090313, end: 20090430

REACTIONS (1)
  - CEREBRAL INFARCTION [None]
